FAERS Safety Report 12675174 (Version 1)
Quarter: 2016Q3

REPORT INFORMATION
  Report Type: Spontaneous
  Country: US (occurrence: US)
  Receive Date: 20160823
  Receipt Date: 20160823
  Transmission Date: 20161109
  Serious: No
  Sender: FDA-Public Use
  Company Number: US-AMGEN-USASP2016106607

PATIENT
  Age: 64 Year
  Sex: Female

DRUGS (2)
  1. OMNICEF [Concomitant]
     Active Substance: CEFDINIR
     Dosage: UNK
  2. ENBREL [Suspect]
     Active Substance: ETANERCEPT
     Indication: PRODUCT USED FOR UNKNOWN INDICATION
     Dosage: 50 MG, Q ONCE WEEKLY
     Route: 058
     Dates: start: 201604

REACTIONS (2)
  - Infection [Unknown]
  - Sinusitis [Unknown]

NARRATIVE: CASE EVENT DATE: 2016
